FAERS Safety Report 24924379 (Version 1)
Quarter: 2025Q1

REPORT INFORMATION
  Report Type: Spontaneous
  Country: US (occurrence: None)
  Receive Date: 20250131
  Receipt Date: 20250131
  Transmission Date: 20250409
  Serious: No
  Sender: FDA-CTU
  Company Number: None

PATIENT
  Age: 65 Year
  Sex: Female

DRUGS (5)
  1. JAKAFI [Suspect]
     Active Substance: RUXOLITINIB
     Dosage: 5 MG BID ?
  2. PENICILLIN [Concomitant]
     Active Substance: PENICILLIN
  3. URSODIOL [Concomitant]
     Active Substance: URSODIOL
  4. ALBUTEROL [Concomitant]
     Active Substance: ALBUTEROL
  5. ACYCLOVIR [Concomitant]
     Active Substance: ACYCLOVIR

REACTIONS (1)
  - Influenza [None]

NARRATIVE: CASE EVENT DATE: 20250131
